FAERS Safety Report 18722839 (Version 1)
Quarter: 2021Q1

REPORT INFORMATION
  Report Type: Spontaneous
  Country: US (occurrence: US)
  Receive Date: 20210108
  Receipt Date: 20210108
  Transmission Date: 20210419
  Serious: No
  Sender: FDA-Public Use
  Company Number: None

PATIENT
  Age: 10 Year
  Sex: Male

DRUGS (1)
  1. PROMACTA [Suspect]
     Active Substance: ELTROMBOPAG OLAMINE
     Indication: THROMBOCYTOPENIA
     Route: 048
     Dates: start: 201905

REACTIONS (4)
  - Pyrexia [None]
  - SARS-CoV-2 test positive [None]
  - Epistaxis [None]
  - Platelet count decreased [None]

NARRATIVE: CASE EVENT DATE: 20210102
